FAERS Safety Report 11484090 (Version 1)
Quarter: 2015Q3

REPORT INFORMATION
  Report Type: Spontaneous
  Country: US (occurrence: None)
  Receive Date: 20150904
  Receipt Date: 20150904
  Transmission Date: 20151125
  Serious: Yes (Disabling)
  Sender: FDA-Public Use
  Company Number: 1000070324

PATIENT
  Age: 62 Year
  Sex: Female
  Weight: 68 kg

DRUGS (4)
  1. VICODIN (VICODIN) (VICODIN) [Concomitant]
  2. SAPHRIS [Suspect]
     Active Substance: ASENAPINE MALEATE
     Indication: DEPRESSION
     Dosage: SUBLINGUAL
     Route: 060
  3. DEPAKOTE [Concomitant]
     Active Substance: DIVALPROEX SODIUM
  4. PRISTIQ (DESVENLAFAXINE SUCCINATE) (DESVENLAFAXINE SUCCINATE) [Concomitant]

REACTIONS (2)
  - Off label use [None]
  - Tardive dyskinesia [None]
